FAERS Safety Report 7412329-3 (Version None)
Quarter: 2011Q2

REPORT INFORMATION
  Report Type: 
  Country: None (occurrence: None)
  Receive Date: 20110413
  Receipt Date: 20110406
  Transmission Date: 20111010
  Serious: Yes (Disabling, Other)
  Sender: FDA-Public Use
  Company Number: IT-ALLERGAN-1104883US

PATIENT
  Sex: Female

DRUGS (1)
  1. BOTOX [Suspect]
     Indication: BLEPHAROSPASM
     Dosage: 20 UNITS, SINGLE
     Route: 030

REACTIONS (2)
  - BLINDNESS [None]
  - UVEITIS [None]
